FAERS Safety Report 6212934-6 (Version None)
Quarter: 2009Q2

REPORT INFORMATION
  Report Type: 
  Country: None (occurrence: None)
  Receive Date: 20090601
  Receipt Date: 20090519
  Transmission Date: 20091009
  Serious: Yes (Other)
  Sender: FDA-Public Use
  Company Number: 2009S1000183

PATIENT
  Age: 50 Year
  Sex: Female
  Weight: 83.4619 kg

DRUGS (4)
  1. SORIATANE [Suspect]
     Indication: MYCOSIS FUNGOIDES
     Dosage: 25 MG; QD; PO
     Route: 048
     Dates: start: 20030101, end: 20040101
  2. SORIATANE [Suspect]
     Indication: MYCOSIS FUNGOIDES
     Dosage: 25 MG; QD; PO
     Route: 048
     Dates: start: 20090213, end: 20090515
  3. TEKTURNA [Concomitant]
  4. PLAVIX [Concomitant]

REACTIONS (14)
  - ALOPECIA [None]
  - BACK PAIN [None]
  - BLOOD GLUCOSE INCREASED [None]
  - CELLULITIS [None]
  - CHAPPED LIPS [None]
  - DIABETES MELLITUS [None]
  - DRY EYE [None]
  - GAIT DISTURBANCE [None]
  - MIGRAINE [None]
  - NASAL CONGESTION [None]
  - OFF LABEL USE [None]
  - PAIN IN EXTREMITY [None]
  - SKIN DISORDER [None]
  - SKIN EXFOLIATION [None]
